FAERS Safety Report 12682788 (Version 1)
Quarter: 2016Q3

REPORT INFORMATION
  Report Type: Spontaneous
  Country: US (occurrence: US)
  Receive Date: 20160825
  Receipt Date: 20160825
  Transmission Date: 20161109
  Serious: Yes (Other)
  Sender: FDA-Public Use
  Company Number: US-RECKITT BENCKISER HEALTHCARE INT LIMITED-RB-89692-2016

PATIENT
  Age: 26 Year
  Sex: Female

DRUGS (1)
  1. MUCINEX DM MAXIMUM STRENGTH [Suspect]
     Active Substance: DEXTROMETHORPHAN HYDROBROMIDE\GUAIFENESIN
     Indication: DRUG ABUSE
     Dosage: 15600 MG (13 PILLS), QD (EARLY IN THE DAY)
     Route: 065
     Dates: start: 20160819

REACTIONS (4)
  - Loss of consciousness [Unknown]
  - Overdose [Unknown]
  - Drug abuse [Unknown]
  - Head banging [Unknown]

NARRATIVE: CASE EVENT DATE: 20160819
